FAERS Safety Report 15613574 (Version 1)
Quarter: 2018Q4

REPORT INFORMATION
  Report Type: Spontaneous
  Country: FR (occurrence: FR)
  Receive Date: 20181113
  Receipt Date: 20181113
  Transmission Date: 20190205
  Serious: Yes (Hospitalization, Other)
  Sender: FDA-Public Use
  Company Number: FR-TEVA-2018-FR-974721

PATIENT
  Age: 88 Year
  Sex: Female
  Weight: 63 kg

DRUGS (2)
  1. CLOPIDOGREL (B?SILATE DE) [Suspect]
     Active Substance: CLOPIDOGREL BESILATE
     Indication: ISCHAEMIC STROKE
     Dosage: 75 MILLIGRAM DAILY;
     Route: 048
     Dates: start: 2011
  2. ELIQUIS [Interacting]
     Active Substance: APIXABAN
     Indication: ATRIAL FIBRILLATION
     Dosage: 5 MILLIGRAM DAILY;
     Route: 048
     Dates: start: 20180122, end: 20180909

REACTIONS (3)
  - Drug interaction [Unknown]
  - Anaemia [Recovering/Resolving]
  - Gastric ulcer haemorrhage [Recovering/Resolving]

NARRATIVE: CASE EVENT DATE: 201809
